FAERS Safety Report 15033829 (Version 5)
Quarter: 2018Q4

REPORT INFORMATION
  Report Type: Spontaneous
  Country: CA (occurrence: CA)
  Receive Date: 20180619
  Receipt Date: 20181127
  Transmission Date: 20190204
  Serious: Yes (Hospitalization, Disabling, Other)
  Sender: FDA-Public Use
  Company Number: CA-BEH-2018091743

PATIENT
  Age: 54 Year
  Sex: Female
  Weight: 101 kg

DRUGS (2)
  1. PIPERACILLIN AND TAZOBACTAM [Concomitant]
     Active Substance: PIPERACILLIN SODIUM\TAZOBACTAM SODIUM
     Dosage: 2.25 G, UNK
     Route: 065
  2. ALBUREX [Suspect]
     Active Substance: ALBUMIN HUMAN
     Indication: HAEMODIALYSIS
     Dosage: 100 ML, QD
     Route: 042
     Dates: start: 20171113, end: 20171114

REACTIONS (3)
  - Nerve injury [Recovering/Resolving]
  - Skin burning sensation [Recovering/Resolving]
  - Infusion site extravasation [Unknown]

NARRATIVE: CASE EVENT DATE: 20171114
